FAERS Safety Report 10088082 (Version 3)
Quarter: 2014Q2

REPORT INFORMATION
  Report Type: Report from Study
  Country: FR (occurrence: FR)
  Receive Date: 20140421
  Receipt Date: 20140521
  Transmission Date: 20141212
  Serious: Yes (Other)
  Sender: FDA-Public Use
  Company Number: FR-ROCHE-1381764

PATIENT
  Sex: 0

DRUGS (5)
  1. RITUXIMAB [Suspect]
     Indication: GRANULOMATOSIS WITH POLYANGIITIS
     Dosage: FOUR, ONCE-WEEKLY RTX INFUSIONS OF 375 MG/M2 EACH, OR TWO INFUSIONS OF 1 G EACH, GIVEN TWO WEEKS APA
     Route: 065
  2. MYCOPHENOLATE MOFETIL [Suspect]
     Indication: GRANULOMATOSIS WITH POLYANGIITIS
     Route: 065
  3. AZATHIOPRINE [Suspect]
     Indication: GRANULOMATOSIS WITH POLYANGIITIS
     Route: 065
  4. METHOTREXATE [Suspect]
     Indication: GRANULOMATOSIS WITH POLYANGIITIS
     Route: 065
  5. CYCLOPHOSPHAMIDE [Suspect]
     Indication: GRANULOMATOSIS WITH POLYANGIITIS
     Route: 065

REACTIONS (12)
  - Pneumonia [Unknown]
  - Upper respiratory tract infection [Unknown]
  - Urinary tract infection [Unknown]
  - Abdominal infection [Unknown]
  - Skin infection [Unknown]
  - Cytomegalovirus infection [Unknown]
  - Infection [Unknown]
  - Vasculitis [Unknown]
  - Blood immunoglobulin G decreased [Unknown]
  - Infusion related reaction [Unknown]
  - Neutropenia [Unknown]
  - Pulmonary embolism [Unknown]
